FAERS Safety Report 4649987-2 (Version None)
Quarter: 2005Q2

REPORT INFORMATION
  Report Type: 
  Country: None (occurrence: None)
  Receive Date: 20050428
  Receipt Date: 20050412
  Transmission Date: 20051028
  Serious: Yes (Death, Hospitalization)
  Sender: FDA-Public Use
  Company Number: 2005000718

PATIENT
  Age: 67 Year
  Sex: Male
  Weight: 76 kg

DRUGS (6)
  1. ERLOTINIB HCL (TABLET) (ERLOTINIB HCL) [Suspect]
     Indication: NON-SMALL CELL LUNG CANCER
     Dosage: 150 MG, ORAL
     Route: 048
     Dates: start: 20050119, end: 20050324
  2. PACLITAXEL [Suspect]
     Dosage: 382 MG, INTRAVENOUS
     Route: 042
     Dates: start: 20050121, end: 20050325
  3. CARBOPLATIN [Suspect]
     Dosage: 782 MG, INTRAVENOUS
     Route: 042
     Dates: start: 20050121, end: 20050325
  4. NAPROXEN [Concomitant]
  5. ZYRTEC [Concomitant]
  6. ATIVAN [Concomitant]

REACTIONS (4)
  - ACUTE RESPIRATORY DISTRESS SYNDROME [None]
  - FLATULENCE [None]
  - INFECTION [None]
  - SMALL INTESTINAL OBSTRUCTION [None]
